FAERS Safety Report 6039200-6 (Version None)
Quarter: 2009Q1

REPORT INFORMATION
  Report Type: 
  Country: None (occurrence: None)
  Receive Date: 20090115
  Receipt Date: 20090114
  Transmission Date: 20090719
  Serious: Yes (Hospitalization, Other)
  Sender: FDA-Public Use
  Company Number: US-PFIZER INC-2008069482

PATIENT
  Sex: Male
  Weight: 65.32 kg

DRUGS (18)
  1. BLINDED *PLACEBO [Suspect]
     Indication: OSTEOARTHRITIS
     Dosage: UNK
     Route: 048
     Dates: start: 20070221, end: 20080422
  2. BLINDED CELECOXIB [Suspect]
     Indication: OSTEOARTHRITIS
     Dosage: UNK
     Route: 048
     Dates: start: 20070221, end: 20080422
  3. IBUPROFEN TABLETS [Suspect]
     Indication: OSTEOARTHRITIS
     Dosage: UNK
     Route: 048
     Dates: start: 20070221, end: 20080422
  4. NAPROXEN [Suspect]
     Indication: OSTEOARTHRITIS
     Dosage: UNK
     Route: 048
     Dates: start: 20070221, end: 20080422
  5. BLINDED *PLACEBO [Suspect]
     Indication: RHEUMATOID ARTHRITIS
     Dosage: UNK
     Route: 048
     Dates: start: 20080604, end: 20080601
  6. BLINDED CELECOXIB [Suspect]
     Indication: RHEUMATOID ARTHRITIS
     Dosage: UNK
     Route: 048
     Dates: start: 20080604, end: 20080601
  7. IBUPROFEN TABLETS [Suspect]
     Indication: RHEUMATOID ARTHRITIS
     Dosage: UNK
     Route: 048
     Dates: start: 20080604, end: 20080601
  8. NAPROXEN [Suspect]
     Indication: RHEUMATOID ARTHRITIS
     Dosage: UNK
     Route: 048
     Dates: start: 20080604, end: 20080601
  9. BLINDED *PLACEBO [Suspect]
     Dosage: UNK
     Route: 048
     Dates: start: 20081001
  10. BLINDED CELECOXIB [Suspect]
     Dosage: UNK
     Route: 048
     Dates: start: 20081001
  11. IBUPROFEN TABLETS [Suspect]
     Dosage: UNK
     Route: 048
     Dates: start: 20081001
  12. NAPROXEN [Suspect]
     Dosage: UNK
     Route: 048
     Dates: start: 20081001
  13. NEXIUM [Concomitant]
     Dosage: 40 MG, 1X/DAY
     Route: 048
     Dates: start: 20070221
  14. MULTI-VITAMINS [Concomitant]
     Route: 048
     Dates: start: 19740101
  15. VITAMIN E [Concomitant]
     Route: 048
     Dates: start: 20061001
  16. ACETAMINOPHEN [Concomitant]
     Route: 048
     Dates: start: 20060801
  17. ATENOLOL [Concomitant]
     Route: 048
     Dates: start: 20070418
  18. LISINOPRIL [Concomitant]
     Route: 048
     Dates: start: 20070430

REACTIONS (2)
  - CERVICAL MYELOPATHY [None]
  - CERVICAL SPINAL STENOSIS [None]
